FAERS Safety Report 23376223 (Version 3)
Quarter: 2024Q2

REPORT INFORMATION
  Report Type: Spontaneous
  Country: US (occurrence: US)
  Receive Date: 20240108
  Receipt Date: 20240610
  Transmission Date: 20240716
  Serious: Yes (Other)
  Sender: FDA-Public Use
  Company Number: US-SA-SAC20240105000113

PATIENT
  Age: 70 Year
  Sex: Male

DRUGS (2)
  1. KEVZARA [Suspect]
     Active Substance: SARILUMAB
     Indication: Rheumatoid arthritis
     Dosage: 200 MG, QOW
     Route: 058
  2. XELJANZ [Suspect]
     Active Substance: TOFACITINIB CITRATE
     Dosage: UNK

REACTIONS (10)
  - Bell^s palsy [Unknown]
  - Lagophthalmos [Unknown]
  - Trigeminal neuralgia [Unknown]
  - Hypoaesthesia [Unknown]
  - Facial pain [Unknown]
  - Condition aggravated [Unknown]
  - Eye pain [Unknown]
  - Herpes zoster [Unknown]
  - Herpes simplex [Unknown]
  - Cataract operation [Unknown]
